FAERS Safety Report 8780075 (Version 1)
Quarter: 2012Q4

REPORT INFORMATION
  Report Type: Spontaneous
  Country: US (occurrence: None)
  Receive Date: 20120904
  Receipt Date: 20120904
  Transmission Date: 20130627
  Serious: Yes (Hospitalization)
  Sender: FDA-Public Use
  Company Number: None

PATIENT
  Age: 63 Year
  Sex: Male
  Weight: 90.9 kg

DRUGS (1)
  1. RANIBIZUMAB, [Suspect]
     Dates: start: 20111223

REACTIONS (5)
  - Hypertensive crisis [None]
  - Nausea [None]
  - Vomiting [None]
  - Headache [None]
  - Diastolic dysfunction [None]
